FAERS Safety Report 5441136-6 (Version None)
Quarter: 2007Q3

REPORT INFORMATION
  Report Type: 
  Country: None (occurrence: None)
  Receive Date: 20070831
  Receipt Date: 20070823
  Transmission Date: 20080115
  Serious: Yes (Other)
  Sender: FDA-Public Use
  Company Number: AU-PFIZER INC-2007065760

PATIENT
  Age: 31 Year
  Sex: Female
  Weight: 65 kg

DRUGS (2)
  1. ZELDOX (CAPSULES) [Suspect]
     Indication: SCHIZOPHRENIA
     Route: 048
     Dates: start: 20070709, end: 20070716
  2. FLUOXETINE [Concomitant]

REACTIONS (6)
  - AGITATION [None]
  - AKATHISIA [None]
  - MUSCULOSKELETAL DISCOMFORT [None]
  - PSYCHOMOTOR HYPERACTIVITY [None]
  - RESTLESSNESS [None]
  - TRISMUS [None]
